FAERS Safety Report 23162984 (Version 1)
Quarter: 2023Q4

REPORT INFORMATION
  Report Type: Report from Study
  Country: US (occurrence: US)
  Receive Date: 20231109
  Receipt Date: 20231109
  Transmission Date: 20240109
  Serious: Yes (Hospitalization)
  Sender: FDA-Public Use
  Company Number: US-EXELIXIS-XL18423068838

PATIENT

DRUGS (2)
  1. CABOZANTINIB [Suspect]
     Active Substance: CABOZANTINIB
     Indication: Rectal adenocarcinoma
     Dosage: 40 MG, QD
     Route: 048
     Dates: start: 20221206
  2. NIVOLUMAB [Suspect]
     Active Substance: NIVOLUMAB
     Indication: Rectal adenocarcinoma
     Dosage: 480 MG Q28DAYS
     Route: 041
     Dates: start: 20221206

REACTIONS (1)
  - Gastrointestinal haemorrhage [Unknown]

NARRATIVE: CASE EVENT DATE: 20230928
